FAERS Safety Report 20758273 (Version 1)
Quarter: 2022Q2

REPORT INFORMATION
  Report Type: Spontaneous
  Country: US (occurrence: US)
  Receive Date: 20220427
  Receipt Date: 20220427
  Transmission Date: 20220721
  Serious: No
  Sender: FDA-Public Use
  Company Number: US-Blueprint Medicines Corporation-30

PATIENT
  Sex: Female

DRUGS (1)
  1. AYVAKIT [Suspect]
     Active Substance: AVAPRITINIB
     Indication: Gastrointestinal stromal tumour
     Dosage: 300MG DAILY
     Route: 048
     Dates: start: 20210717

REACTIONS (3)
  - Myalgia [Unknown]
  - Nasopharyngitis [Unknown]
  - Product dose omission issue [Unknown]
